FAERS Safety Report 24545101 (Version 2)
Quarter: 2024Q4

REPORT INFORMATION
  Report Type: Report from Study
  Country: US (occurrence: US)
  Receive Date: 20241024
  Receipt Date: 20241029
  Transmission Date: 20250115
  Serious: Yes (Other)
  Sender: UCB
  Company Number: US-UCBSA-2024037337

PATIENT
  Sex: Female
  Weight: 62.7 kg

DRUGS (3)
  1. FINTEPLA [Suspect]
     Active Substance: FENFLURAMINE
     Indication: Lennox-Gastaut syndrome
     Dosage: 5.9 MILLILITER, 2X/DAY (BID)
     Dates: start: 20220524
  2. FINTEPLA [Suspect]
     Active Substance: FENFLURAMINE
     Dosage: 5.9 MILLILITER, 2X/DAY (BID)
  3. FINTEPLA [Suspect]
     Active Substance: FENFLURAMINE
     Dosage: 25.96 MILLIGRAM, ONCE DAILY (QD)

REACTIONS (4)
  - Seizure [Not Recovered/Not Resolved]
  - Intellectual disability [Unknown]
  - Product use complaint [Unknown]
  - Product dose omission issue [Unknown]
